FAERS Safety Report 9601157 (Version 1)
Quarter: 2013Q4

REPORT INFORMATION
  Report Type: Spontaneous
  Country: BR (occurrence: BR)
  Receive Date: 20131005
  Receipt Date: 20131005
  Transmission Date: 20140711
  Serious: Yes (Other)
  Sender: FDA-Public Use
  Company Number: BR-BIOMARINAP-BR-2013-101634

PATIENT
  Age: 12 Year
  Sex: Female
  Weight: 25 kg

DRUGS (1)
  1. ALDURAZYME [Suspect]
     Indication: MUCOPOLYSACCHARIDOSIS I
     Dosage: UNK, QW
     Route: 041
     Dates: start: 20080319

REACTIONS (3)
  - Aphthous stomatitis [Recovering/Resolving]
  - Mastication disorder [Not Recovered/Not Resolved]
  - Oral pain [Recovering/Resolving]
